FAERS Safety Report 5912195-9 (Version None)
Quarter: 2008Q4

REPORT INFORMATION
  Report Type: 
  Country: None (occurrence: None)
  Receive Date: 20081008
  Receipt Date: 20080930
  Transmission Date: 20090506
  Serious: Yes (Death)
  Sender: FDA-Public Use
  Company Number: NL-TEVA-178307ISR

PATIENT
  Sex: Female
  Weight: 70 kg

DRUGS (7)
  1. BACTRIM [Suspect]
     Indication: URINARY TRACT INFECTION
     Dates: start: 20080912, end: 20080912
  2. METFORMIN HCL [Suspect]
     Indication: DIABETES MELLITUS
     Dates: start: 20070101, end: 20080912
  3. ACETYLSALICYLATE CALCIUM [Concomitant]
  4. DIPYRIDAMOLE [Concomitant]
  5. ISOSORBIDE MONONITRATE [Concomitant]
  6. INSULIN ASPART [Concomitant]
     Dosage: 1 DF EVERY DAY
  7. PROPRANOLOL HYDROCHLORIDE [Concomitant]

REACTIONS (3)
  - DEATH [None]
  - HEPATIC FAILURE [None]
  - RENAL FAILURE [None]
